FAERS Safety Report 4463954-3 (Version None)
Quarter: 2004Q4

REPORT INFORMATION
  Report Type: 
  Country: None (occurrence: None)
  Receive Date: 20041001
  Receipt Date: 20040818
  Transmission Date: 20050328
  Serious: Yes (Hospitalization)
  Sender: FDA-Public Use
  Company Number: US-AMGEN-US087660

PATIENT
  Sex: Female
  Weight: 49.5 kg

DRUGS (1)
  1. FILGRASTIM [Suspect]
     Indication: BLOOD STEM CELL HARVEST
     Route: 058
     Dates: start: 20040809, end: 20040813

REACTIONS (2)
  - NAUSEA [None]
  - VOMITING [None]
